FAERS Safety Report 6213925-1 (Version None)
Quarter: 2009Q2

REPORT INFORMATION
  Report Type: 
  Country: None (occurrence: None)
  Receive Date: 20090602
  Receipt Date: 20090527
  Transmission Date: 20091009
  Serious: Yes (Death)
  Sender: FDA-Public Use
  Company Number: 2009-197499-NL

PATIENT
  Age: 25 Year
  Sex: Female

DRUGS (5)
  1. FOLLITROPIN BETA [Suspect]
     Dosage: DF
     Dates: start: 20090501, end: 20090501
  2. ESTRADIOL VALERATE [Concomitant]
  3. DYDROGESTERONE TAB [Concomitant]
  4. ACETYLSALICYLIC ACID SRT [Concomitant]
  5. DEXAMETHASONE [Concomitant]

REACTIONS (3)
  - GASTRIC ULCER [None]
  - HAEMORRHAGE [None]
  - STRESS ULCER [None]
